FAERS Safety Report 5104835-1 (Version None)
Quarter: 2006Q3

REPORT INFORMATION
  Report Type: 
  Country: None (occurrence: None)
  Receive Date: 20060914
  Receipt Date: 20060817
  Transmission Date: 20061208
  Serious: Yes (Death, Hospitalization)
  Sender: FDA-Public Use
  Company Number: JP-ROCHE-459971

PATIENT
  Age: 67 Year
  Sex: Male

DRUGS (17)
  1. PANALDINE [Suspect]
     Indication: THROMBOSIS PROPHYLAXIS
     Route: 048
     Dates: start: 20060727, end: 20060801
  2. URSO [Concomitant]
  3. TOCOPHERYL NICOTINATE-ALPHA [Concomitant]
  4. ORACEF [Concomitant]
     Dates: end: 20060801
  5. ISOSORBIDE MONONITRATE [Concomitant]
     Dates: end: 20060801
  6. MELATE [Concomitant]
     Dates: end: 20060801
  7. EPINASTINE HYDROCHLORIDE [Concomitant]
     Dosage: DRUG NAME REPORTED AS ALEROFF.
     Dates: end: 20060801
  8. HALCION [Concomitant]
     Dates: end: 20060801
  9. PLETAL [Concomitant]
     Dosage: CILOSTAZOL WAS DISCONTINUED ON 01 AUG 2006 AND REINTRODUCED ON 03 AUG 06.
  10. ASPIRIN [Concomitant]
     Dosage: ASPIRIN WAS DISCONTINUED ON 01 AUG 06 ET REINTRODUCED ON 03 AUG 06.
  11. CALTAN [Concomitant]
  12. SELBEX [Concomitant]
  13. HOKUNALIN [Concomitant]
  14. DEPAS [Concomitant]
  15. ZANTAC [Concomitant]
  16. ADONA [Concomitant]
  17. HERBAL EXTRACTS NOS [Concomitant]

REACTIONS (10)
  - BLOOD PRESSURE DECREASED [None]
  - CARDIAC FAILURE [None]
  - DEPRESSED LEVEL OF CONSCIOUSNESS [None]
  - GRANULOCYTOPENIA [None]
  - HAEMODIALYSIS [None]
  - HEPATIC FUNCTION ABNORMAL [None]
  - HEPATIC NECROSIS [None]
  - PYREXIA [None]
  - RESPIRATORY ARREST [None]
  - VENTRICULAR FIBRILLATION [None]
